FAERS Safety Report 18606208 (Version 2)
Quarter: 2021Q4

REPORT INFORMATION
  Report Type: Spontaneous
  Country: US (occurrence: US)
  Receive Date: 20201211
  Receipt Date: 20211111
  Transmission Date: 20220303
  Serious: No
  Sender: FDA-Public Use
  Company Number: US-PFIZER INC-2020487402

PATIENT
  Sex: Female

DRUGS (2)
  1. LYRICA [Suspect]
     Active Substance: PREGABALIN
     Dosage: 3 DF, DAILY [3 PILLS A DAY]
  2. LYRICA [Suspect]
     Active Substance: PREGABALIN
     Dosage: 1 DF, DAILY [1 PILL A DAY]

REACTIONS (6)
  - Drug ineffective [Unknown]
  - Nerve injury [Unknown]
  - Gait disturbance [Unknown]
  - Weight increased [Unknown]
  - Neuralgia [Unknown]
  - Loss of personal independence in daily activities [Unknown]
